FAERS Safety Report 18943463 (Version 1)
Quarter: 2021Q1

REPORT INFORMATION
  Report Type: Spontaneous
  Country: FR (occurrence: FR)
  Receive Date: 20210226
  Receipt Date: 20210226
  Transmission Date: 20210420
  Serious: Yes (Hospitalization)
  Sender: FDA-Public Use
  Company Number: FR-TEVA-2021-FR-1883338

PATIENT
  Age: 45 Year
  Sex: Male
  Weight: 103 kg

DRUGS (1)
  1. KETOPROFENE [Suspect]
     Active Substance: KETOPROFEN
     Indication: ABDOMINAL PAIN
     Dosage: 1 TO 2 SOCKETS
     Route: 048
     Dates: start: 202101, end: 202101

REACTIONS (1)
  - Thrombocytopenic purpura [Recovering/Resolving]

NARRATIVE: CASE EVENT DATE: 20210120
